FAERS Safety Report 9935972 (Version 2)
Quarter: 2014Q1

REPORT INFORMATION
  Report Type: Spontaneous
  Country: US (occurrence: US)
  Receive Date: 20140228
  Receipt Date: 20140228
  Transmission Date: 20141002
  Serious: No
  Sender: FDA-Public Use
  Company Number: US-GILEAD-2013-0068963

PATIENT
  Age: 48 Year
  Sex: Male
  Weight: 71.2 kg

DRUGS (5)
  1. STRIBILD [Suspect]
     Indication: HIV INFECTION
     Dosage: UNK
     Dates: start: 201211
  2. PLAVIX [Concomitant]
  3. BABY ASPIRIN [Concomitant]
  4. LISINOPRIL [Concomitant]
  5. CARVEDILOL [Concomitant]

REACTIONS (1)
  - Dermatitis allergic [Recovering/Resolving]
